FAERS Safety Report 6183518-3 (Version None)
Quarter: 2009Q2

REPORT INFORMATION
  Report Type: 
  Country: None (occurrence: None)
  Receive Date: 20090506
  Receipt Date: 20090427
  Transmission Date: 20091009
  Serious: Yes (Hospitalization)
  Sender: FDA-Public Use
  Company Number: 09-183

PATIENT
  Age: 54 Year
  Sex: Female

DRUGS (8)
  1. ALEVE [Suspect]
     Indication: ARTHRALGIA
     Dosage: 440 MG, DAILY, ORAL; ORAL
     Route: 048
     Dates: end: 20081001
  2. ALEVE [Suspect]
     Indication: ARTHRITIS
     Dosage: 440 MG, DAILY, ORAL; ORAL
     Route: 048
     Dates: end: 20081001
  3. ALEVE [Suspect]
     Indication: TENDONITIS
     Dosage: 440 MG, DAILY, ORAL; ORAL
     Route: 048
     Dates: end: 20081001
  4. ALEVE [Suspect]
     Indication: ARTHRALGIA
     Dosage: 440 MG, DAILY, ORAL; ORAL
     Route: 048
     Dates: start: 20081001, end: 20090418
  5. ALEVE [Suspect]
     Indication: ARTHRITIS
     Dosage: 440 MG, DAILY, ORAL; ORAL
     Route: 048
     Dates: start: 20081001, end: 20090418
  6. ALEVE [Suspect]
     Indication: TENDONITIS
     Dosage: 440 MG, DAILY, ORAL; ORAL
     Route: 048
     Dates: start: 20081001, end: 20090418
  7. SPIRIVA [Concomitant]
  8. BLINDED STUDY MEDICATION [Concomitant]

REACTIONS (4)
  - BACK PAIN [None]
  - CHEST DISCOMFORT [None]
  - DYSPEPSIA [None]
  - ERUCTATION [None]
